FAERS Safety Report 25206053 (Version 2)
Quarter: 2025Q2

REPORT INFORMATION
  Report Type: Spontaneous
  Country: FR (occurrence: FR)
  Receive Date: 20250417
  Receipt Date: 20250430
  Transmission Date: 20250717
  Serious: Yes (Hospitalization)
  Sender: TEVA
  Company Number: FR-TEVA-VS-3320227

PATIENT
  Age: 16 Year
  Sex: Female

DRUGS (9)
  1. CITALOPRAM [Suspect]
     Active Substance: CITALOPRAM
     Indication: Drug abuse
     Route: 048
  2. PAROXETINE [Suspect]
     Active Substance: PAROXETINE
     Indication: Drug abuse
     Route: 048
  3. ARIPIPRAZOLE [Concomitant]
     Active Substance: ARIPIPRAZOLE
     Indication: Depression
  4. VENLAFAXINE [Suspect]
     Active Substance: VENLAFAXINE HYDROCHLORIDE
     Indication: Drug abuse
     Route: 048
  5. CETIRIZINE [Concomitant]
     Active Substance: CETIRIZINE HYDROCHLORIDE
     Indication: Product used for unknown indication
  6. SERTRALINE [Suspect]
     Active Substance: SERTRALINE HYDROCHLORIDE
     Indication: Drug abuse
     Route: 048
  7. ESCITALOPRAM [Suspect]
     Active Substance: ESCITALOPRAM OXALATE
     Indication: Drug abuse
     Route: 048
  8. HYDROXYZINE [Concomitant]
     Active Substance: HYDROXYZINE HYDROCHLORIDE
     Indication: Anxiety
  9. TRIHEXYPHENIDYL [Suspect]
     Active Substance: TRIHEXYPHENIDYL
     Indication: Drug abuse
     Route: 048

REACTIONS (5)
  - Confusional state [Recovered/Resolved]
  - Toxicity to various agents [Recovering/Resolving]
  - Drug abuse [Recovering/Resolving]
  - Hallucination [Recovered/Resolved]
  - Sinus tachycardia [Unknown]
